FAERS Safety Report 7252912-1 (Version None)
Quarter: 2011Q1

REPORT INFORMATION
  Report Type: 
  Country: None (occurrence: None)
  Receive Date: 20110129
  Receipt Date: 20100301
  Transmission Date: 20110831
  Serious: No
  Sender: FDA-Public Use
  Company Number: US-ABBOTT-10P-163-0629639-00

PATIENT
  Sex: Female
  Weight: 88.076 kg

DRUGS (5)
  1. HUMIRA [Suspect]
     Indication: CROHN'S DISEASE
     Dates: start: 20091001
  2. ATENOLOL [Concomitant]
     Indication: HYPERTENSION
  3. HYDROCHLOROTHIAZIDE [Concomitant]
     Indication: HYPERTENSION
  4. MULTIPLE VITAMINS [Concomitant]
     Indication: VITAMIN SUPPLEMENTATION
  5. FUROSEMIDE [Concomitant]
     Indication: HYPERTENSION

REACTIONS (3)
  - PAIN IN EXTREMITY [None]
  - NECK PAIN [None]
  - PARAESTHESIA [None]
